FAERS Safety Report 9016297 (Version 1)
Quarter: 2013Q1

REPORT INFORMATION
  Report Type: Spontaneous
  Country: US (occurrence: US)
  Receive Date: 20130116
  Receipt Date: 20130116
  Transmission Date: 20140127
  Serious: Yes (Life-Threatening, Hospitalization, Other)
  Sender: FDA-Public Use
  Company Number: US-009507513-1301XAA004005

PATIENT
  Age: 81 Year
  Sex: Female

DRUGS (4)
  1. SINGULAIR [Suspect]
  2. LORATADINE [Suspect]
  3. CLARITIN [Suspect]
  4. AMLODIPINE BESYLATE [Suspect]

REACTIONS (6)
  - Leukocytoclastic vasculitis [Unknown]
  - Decreased appetite [Unknown]
  - Asthma [Unknown]
  - Cerebral infarction [Unknown]
  - Cholelithiasis [Unknown]
  - Drug hypersensitivity [Unknown]
